FAERS Safety Report 9155899 (Version 1)
Quarter: 2013Q1

REPORT INFORMATION
  Report Type: Spontaneous
  Country: US (occurrence: US)
  Receive Date: 20130311
  Receipt Date: 20130311
  Transmission Date: 20140127
  Serious: Yes (Other)
  Sender: FDA-Public Use
  Company Number: US-ASTRAZENECA-2013SE14526

PATIENT
  Sex: 0

DRUGS (1)
  1. CAPRELSA [Suspect]
     Route: 048

REACTIONS (2)
  - Disease progression [Unknown]
  - Diarrhoea [Unknown]
